FAERS Safety Report 6063278-7 (Version None)
Quarter: 2009Q1

REPORT INFORMATION
  Report Type: 
  Country: None (occurrence: None)
  Receive Date: 20090203
  Receipt Date: 20090130
  Transmission Date: 20090719
  Serious: Yes (Death, Hospitalization)
  Sender: FDA-Public Use
  Company Number: US-ABBOTT-09P-163-0500705-00

PATIENT
  Sex: Male

DRUGS (1)
  1. HUMIRA [Suspect]
     Indication: RHEUMATOID ARTHRITIS
     Route: 058
     Dates: start: 20031121, end: 20090123

REACTIONS (3)
  - BRAIN DEATH [None]
  - PNEUMONIA [None]
  - RESPIRATORY ARREST [None]
